FAERS Safety Report 18348303 (Version 1)
Quarter: 2020Q4

REPORT INFORMATION
  Report Type: Spontaneous
  Country: US (occurrence: US)
  Receive Date: 20201005
  Receipt Date: 20201005
  Transmission Date: 20210114
  Serious: Yes (Hospitalization)
  Sender: FDA-Public Use
  Company Number: None

PATIENT
  Sex: Female

DRUGS (3)
  1. FOLIC ACID, MULTI-VITAMIN [Concomitant]
  2. LEXAPRO, SYNTHROID, MYCOPHENOLATE, OXAPROZIN, ASPIRIN LOW DOSE [Concomitant]
  3. BENLYSTA [Suspect]
     Active Substance: BELIMUMAB
     Indication: SYSTEMIC LUPUS ERYTHEMATOSUS
     Dosage: ?          OTHER FREQUENCY:ONCE WEEKLY;?
     Route: 058
     Dates: start: 20150818

REACTIONS (2)
  - Therapy interrupted [None]
  - Cyst removal [None]
